FAERS Safety Report 17922073 (Version 1)
Quarter: 2020Q2

REPORT INFORMATION
  Report Type: Spontaneous
  Country: US (occurrence: US)
  Receive Date: 20200619
  Receipt Date: 20200619
  Transmission Date: 20200714
  Serious: Yes (Hospitalization)
  Sender: FDA-Public Use
  Company Number: None

PATIENT
  Age: 52 Year
  Sex: Female

DRUGS (6)
  1. ASPIRIN. [Concomitant]
     Active Substance: ASPIRIN
  2. FENTANYL. [Concomitant]
     Active Substance: FENTANYL
  3. ANASTROZOLE. [Concomitant]
     Active Substance: ANASTROZOLE
  4. OXYCODONE [Concomitant]
     Active Substance: OXYCODONE
  5. IBUPROFEN. [Concomitant]
     Active Substance: IBUPROFEN
  6. IBRANCE [Suspect]
     Active Substance: PALBOCICLIB
     Indication: BREAST CANCER FEMALE
     Route: 048
     Dates: start: 20190401

REACTIONS (3)
  - White blood cell count decreased [None]
  - Bone cancer [None]
  - Malignant neoplasm progression [None]

NARRATIVE: CASE EVENT DATE: 20200609
